FAERS Safety Report 15630748 (Version 2)
Quarter: 2018Q4

REPORT INFORMATION
  Report Type: Report from Study
  Country: None (occurrence: US)
  Receive Date: 20181119
  Receipt Date: 20181224
  Transmission Date: 20190205
  Serious: Yes (Other)
  Sender: FDA-Public Use
  Company Number: US-ABBVIE-18K-163-2421295-00

PATIENT
  Age: 68 Year
  Sex: Male

DRUGS (2)
  1. HUMIRA [Suspect]
     Active Substance: ADALIMUMAB
     Indication: RHEUMATOID ARTHRITIS
     Route: 058
  2. GLIMEPIRIDE. [Suspect]
     Active Substance: GLIMEPIRIDE
     Indication: DIABETES MELLITUS
     Route: 065

REACTIONS (17)
  - Anaemia [Not Recovered/Not Resolved]
  - Arthralgia [Unknown]
  - Impaired healing [Not Recovered/Not Resolved]
  - Obesity [Unknown]
  - Skin ulcer [Not Recovered/Not Resolved]
  - Nerve compression [Unknown]
  - Arthralgia [Recovered/Resolved]
  - Neuralgia [Unknown]
  - Red blood cell macrocytes present [Not Recovered/Not Resolved]
  - Vein disorder [Unknown]
  - Somnolence [Unknown]
  - Cardiovascular disorder [Unknown]
  - Hepatomegaly [Not Recovered/Not Resolved]
  - Pollakiuria [Not Recovered/Not Resolved]
  - Diabetes mellitus [Not Recovered/Not Resolved]
  - Splenomegaly [Not Recovered/Not Resolved]
  - Peripheral swelling [Recovering/Resolving]

NARRATIVE: CASE EVENT DATE: 2017
